FAERS Safety Report 15568190 (Version 1)
Quarter: 2018Q4

REPORT INFORMATION
  Report Type: Spontaneous
  Country: ES (occurrence: ES)
  Receive Date: 20181031
  Receipt Date: 20181031
  Transmission Date: 20190205
  Serious: Yes (Other)
  Sender: FDA-Public Use
  Company Number: PHHY2018ES140396

PATIENT
  Age: 85 Year
  Sex: Male

DRUGS (4)
  1. OMEPRAZOL [Suspect]
     Active Substance: OMEPRAZOLE
     Indication: PRODUCT USED FOR UNKNOWN INDICATION
     Dosage: 20 MG, (1 TOTAL)
     Route: 048
     Dates: start: 20180917, end: 20180917
  2. ATORVASTATIN [Interacting]
     Active Substance: ATORVASTATIN
     Indication: PRODUCT USED FOR UNKNOWN INDICATION
     Dosage: 20 MG, (1 TOTAL)
     Route: 048
     Dates: start: 20180917, end: 20180917
  3. ISOSORBIDE MONONITRATE. [Interacting]
     Active Substance: ISOSORBIDE MONONITRATE
     Indication: PRODUCT USED FOR UNKNOWN INDICATION
     Dosage: 40 MG, (1 TOTAL)
     Route: 048
     Dates: start: 20180917, end: 20180917
  4. TRIMETAZIDINA [TRIMETAZIDINE HYDROCHLORIDE] [Interacting]
     Active Substance: TRIMETAZIDINE DIHYDROCHLORIDE
     Indication: PRODUCT USED FOR UNKNOWN INDICATION
     Dosage: 20 MG, (1 TOTAL)
     Route: 048
     Dates: start: 20180917, end: 20180917

REACTIONS (3)
  - Hypertension [Recovered/Resolved]
  - Tachycardia [Recovered/Resolved]
  - Wrong patient received product [Recovered/Resolved]

NARRATIVE: CASE EVENT DATE: 20180917
